FAERS Safety Report 6572682-X (Version None)
Quarter: 2010Q1

REPORT INFORMATION
  Report Type: 
  Country: None (occurrence: None)
  Receive Date: 20100205
  Receipt Date: 20100122
  Transmission Date: 20100710
  Serious: Yes (Death, Hospitalization, Other)
  Sender: FDA-Public Use
  Company Number: EU-TYCO HEALTHCARE/MALLINCKRODT-T201000537

PATIENT
  Age: 50 Year
  Sex: Male

DRUGS (2)
  1. ANAFRANIL CAP [Suspect]
     Dosage: UNK
  2. BENDROFLUMETHIAZIDE [Suspect]
     Dosage: UNK

REACTIONS (14)
  - ALCOHOL WITHDRAWAL SYNDROME [None]
  - BACTERIAL TEST POSITIVE [None]
  - BLOOD PRESSURE INCREASED [None]
  - CONSTIPATION [None]
  - DISORIENTATION [None]
  - DYSARTHRIA [None]
  - ENTEROCOCCAL INFECTION [None]
  - HYPERHIDROSIS [None]
  - HYPONATRAEMIA [None]
  - NO THERAPEUTIC RESPONSE [None]
  - OSMOTIC DEMYELINATION SYNDROME [None]
  - PYREXIA [None]
  - SOMNOLENCE [None]
  - TREMOR [None]
